FAERS Safety Report 16705654 (Version 1)
Quarter: 2019Q3

REPORT INFORMATION
  Report Type: Spontaneous
  Country: US (occurrence: US)
  Receive Date: 20190815
  Receipt Date: 20190815
  Transmission Date: 20191004
  Serious: Yes (Hospitalization)
  Sender: FDA-Public Use
  Company Number: US-ROCHE-2370755

PATIENT
  Sex: Female

DRUGS (3)
  1. ESBRIET [Suspect]
     Active Substance: PIRFENIDONE
     Indication: PULMONARY FIBROSIS
     Dosage: DAILY
     Route: 048
     Dates: start: 20190417
  2. ESBRIET [Interacting]
     Active Substance: PIRFENIDONE
     Dosage: EVENING
     Route: 048
  3. ESBRIET [Interacting]
     Active Substance: PIRFENIDONE
     Dosage: AFTERNOON
     Route: 048

REACTIONS (1)
  - Drug interaction [Unknown]
